FAERS Safety Report 15633872 (Version 2)
Quarter: 2018Q4

REPORT INFORMATION
  Report Type: Spontaneous
  Country: FR (occurrence: FR)
  Receive Date: 20181119
  Receipt Date: 20181210
  Transmission Date: 20190205
  Serious: Yes (Hospitalization)
  Sender: FDA-Public Use
  Company Number: FR-B.I. PHARMACEUTICALS,INC./RIDGEFIELD-2018-12-003703

PATIENT
  Age: 86 Year
  Sex: Female

DRUGS (5)
  1. HEPARINE SODIQUE [Suspect]
     Active Substance: HEPARIN SODIUM
     Indication: ANTICOAGULANT THERAPY
     Dosage: NON PRECISEE, ROUTE OF ADMINISTRATION 041
     Route: 065
     Dates: start: 20181008, end: 20181008
  2. PERSANTINE [Suspect]
     Active Substance: DIPYRIDAMOLE
     Indication: CARDIOVASCULAR FUNCTION TEST
     Dosage: NON PRECISEE,10 MG/2 ML, SOLUTION INJECTABLE, AMPOULE
     Route: 065
     Dates: start: 20181008, end: 20181008
  3. OPTIRAY [Suspect]
     Active Substance: IOVERSOL
     Indication: ANGIOCARDIOGRAM
     Route: 065
     Dates: start: 20181008, end: 20181008
  4. MIDAZOLAM [Suspect]
     Active Substance: MIDAZOLAM HYDROCHLORIDE
     Indication: PREMEDICATION
     Dosage: NON PRECISEE
     Route: 065
     Dates: start: 20181008, end: 20181008
  5. LIDOCAINE. [Suspect]
     Active Substance: LIDOCAINE
     Indication: INFILTRATION ANAESTHESIA
     Dosage: NON PRECISEE
     Route: 014
     Dates: start: 20181008, end: 20181008

REACTIONS (1)
  - Toxic skin eruption [Recovering/Resolving]

NARRATIVE: CASE EVENT DATE: 20181015
